FAERS Safety Report 12942843 (Version 3)
Quarter: 2017Q1

REPORT INFORMATION
  Report Type: Report from Study
  Country: JP (occurrence: JP)
  Receive Date: 20161115
  Receipt Date: 20170203
  Transmission Date: 20170428
  Serious: Yes (Hospitalization, Other)
  Sender: FDA-Public Use
  Company Number: JP-AMGEN-JPNNI2016116274

PATIENT
  Age: 74 Year
  Sex: Male
  Weight: 62 kg

DRUGS (54)
  1. ADRIACIN [Suspect]
     Active Substance: DOXORUBICIN HYDROCHLORIDE
     Dosage: 50 MG/M2, UNK
     Route: 041
     Dates: start: 20160707, end: 20160707
  2. RITUXAN [Concomitant]
     Active Substance: RITUXIMAB
     Dosage: 375 MG/M2, UNK
     Route: 041
     Dates: start: 20160511, end: 20160511
  3. VENOGLOBULIN IH [Concomitant]
     Active Substance: HUMAN IMMUNOGLOBULIN G
     Indication: FEBRILE NEUTROPENIA
     Dosage: UNK
     Route: 042
  4. AMOBAN [Concomitant]
     Active Substance: ZOPICLONE
     Indication: INSOMNIA
     Dosage: UNK
     Route: 048
  5. ACTONEL [Concomitant]
     Active Substance: RISEDRONATE SODIUM
     Indication: OSTEOPOROSIS
     Dosage: UNK
     Route: 048
  6. FEBURIC [Concomitant]
     Active Substance: FEBUXOSTAT
     Indication: HYPERURICAEMIA
     Dosage: UNK
     Route: 048
  7. POLARAMINE [Concomitant]
     Active Substance: DEXCHLORPHENIRAMINE MALEATE
     Dosage: UNK
     Route: 048
  8. PREDONINE [Suspect]
     Active Substance: PREDNISOLONE
     Dosage: 60 MG, UNK
     Route: 048
     Dates: start: 20160707, end: 20160711
  9. GRANISETRON HYDROCHLORIDE. [Concomitant]
     Active Substance: GRANISETRON HYDROCHLORIDE
     Dosage: UNK
     Route: 042
  10. VALSARTAN. [Concomitant]
     Active Substance: VALSARTAN
     Indication: HYPERTENSION
     Dosage: UNK
     Route: 048
  11. SENNOSIDE [Concomitant]
     Active Substance: SENNOSIDES
     Indication: CONSTIPATION
     Dosage: UNK
     Route: 048
  12. URSODEOXYCHOLIC ACID [Concomitant]
     Active Substance: URSODIOL
     Indication: AUTOIMMUNE HEPATITIS
     Dosage: UNK
     Route: 048
  13. PEGFILGRASTIM [Suspect]
     Active Substance: PEGFILGRASTIM
     Indication: COLONY STIMULATING FACTOR PROPHYLAXIS
     Dosage: 3.6 MG, UNK
     Route: 058
     Dates: start: 20160417, end: 20160417
  14. ADRIACIN [Suspect]
     Active Substance: DOXORUBICIN HYDROCHLORIDE
     Dosage: 50 MG/M2, UNK
     Route: 041
     Dates: start: 20160511, end: 20160511
  15. PREDONINE [Suspect]
     Active Substance: PREDNISOLONE
     Dosage: 60 MG, UNK
     Route: 048
     Dates: start: 20160608, end: 20160612
  16. RITUXAN [Concomitant]
     Active Substance: RITUXIMAB
     Indication: NON-HODGKIN^S LYMPHOMA
     Dosage: 375 MG/M2, UNK
     Route: 041
     Dates: start: 20160415, end: 20160415
  17. NEXIUM [Concomitant]
     Active Substance: ESOMEPRAZOLE MAGNESIUM
     Indication: GASTROOESOPHAGEAL REFLUX DISEASE
     Dosage: UNK
     Route: 048
  18. MAGNESIUM OXIDE. [Concomitant]
     Active Substance: MAGNESIUM OXIDE
     Indication: CONSTIPATION
     Dosage: UNK
     Route: 048
  19. BRUFEN [Concomitant]
     Active Substance: IBUPROFEN
     Dosage: UNK
     Route: 048
  20. DAIPHEN [Concomitant]
     Active Substance: SULFAMETHOXAZOLE\TRIMETHOPRIM
     Dosage: UNK
     Route: 048
  21. ENDOXAN [Suspect]
     Active Substance: CYCLOPHOSPHAMIDE
     Indication: NON-HODGKIN^S LYMPHOMA
     Dosage: 750 MG/M2, UNK
     Route: 041
     Dates: start: 20160413, end: 20160413
  22. ENDOXAN [Suspect]
     Active Substance: CYCLOPHOSPHAMIDE
     Dosage: 750 MG/M2, UNK
     Route: 041
     Dates: start: 20160511, end: 20160511
  23. RITUXAN [Concomitant]
     Active Substance: RITUXIMAB
     Dosage: 375 MG/M2, UNK
     Route: 041
     Dates: start: 20160608, end: 20160608
  24. DAIKENCHUTO [Concomitant]
     Active Substance: HERBALS
     Indication: CONSTIPATION
     Dosage: UNK
     Route: 048
  25. PEGFILGRASTIM [Suspect]
     Active Substance: PEGFILGRASTIM
     Dosage: 3.6 MG, UNK
     Route: 058
     Dates: start: 20160513, end: 20160513
  26. PEGFILGRASTIM [Suspect]
     Active Substance: PEGFILGRASTIM
     Dosage: 3.6 MG, UNK
     Route: 058
     Dates: start: 20160709, end: 20160709
  27. ONCOVIN [Suspect]
     Active Substance: VINCRISTINE SULFATE
     Dosage: 1.4 MG/M2, UNK
     Route: 041
     Dates: start: 20160511, end: 20160511
  28. CANCIDAS [Concomitant]
     Active Substance: CASPOFUNGIN ACETATE
     Indication: FEBRILE NEUTROPENIA
     Dosage: UNK
     Route: 041
  29. EMEND [Concomitant]
     Active Substance: APREPITANT
     Dosage: UNK
     Route: 048
  30. SANMEL [Concomitant]
     Indication: GASTROOESOPHAGEAL REFLUX DISEASE
     Dosage: UNK
     Route: 048
  31. VFEND [Concomitant]
     Active Substance: VORICONAZOLE
     Indication: PNEUMONIA
     Dosage: UNK
     Route: 048
  32. ADRIACIN [Suspect]
     Active Substance: DOXORUBICIN HYDROCHLORIDE
     Dosage: 50 MG/M2, UNK
     Route: 041
     Dates: start: 20160608, end: 20160608
  33. ONCOVIN [Suspect]
     Active Substance: VINCRISTINE SULFATE
     Indication: NON-HODGKIN^S LYMPHOMA
     Dosage: 1.4 MG/M2, UNK
     Route: 041
     Dates: start: 20160413, end: 20160413
  34. ONCOVIN [Suspect]
     Active Substance: VINCRISTINE SULFATE
     Dosage: 1.4 MG/M2, UNK
     Route: 041
     Dates: start: 20160707, end: 20160707
  35. ENDOXAN [Suspect]
     Active Substance: CYCLOPHOSPHAMIDE
     Dosage: 750 MG/M2, UNK
     Route: 041
     Dates: start: 20160608, end: 20160608
  36. ENDOXAN [Suspect]
     Active Substance: CYCLOPHOSPHAMIDE
     Dosage: 750 MG/M2, UNK
     Route: 041
     Dates: start: 20160707, end: 20160707
  37. PREDONINE [Suspect]
     Active Substance: PREDNISOLONE
     Indication: NON-HODGKIN^S LYMPHOMA
     Dosage: 60 MG, UNK
     Route: 048
     Dates: start: 20160413, end: 20160417
  38. PREDONINE [Suspect]
     Active Substance: PREDNISOLONE
     Dosage: 60 MG, UNK
     Route: 048
     Dates: start: 20160511, end: 20160515
  39. PREDONINE [Suspect]
     Active Substance: PREDNISOLONE
     Dosage: UNK
     Route: 048
  40. RITUXAN [Concomitant]
     Active Substance: RITUXIMAB
     Dosage: 375 MG/M2, UNK
     Route: 041
     Dates: start: 20160707, end: 20160707
  41. CEFEPIME [Concomitant]
     Active Substance: CEFEPIME HYDROCHLORIDE
     Indication: FEBRILE NEUTROPENIA
     Dosage: UNK
     Route: 042
  42. MEROPENEM. [Concomitant]
     Active Substance: MEROPENEM
     Indication: FEBRILE NEUTROPENIA
     Dosage: UNK
     Route: 041
  43. FLUCONAZOLE. [Concomitant]
     Active Substance: FLUCONAZOLE
     Dosage: UNK
     Route: 048
  44. BUSCOPAN [Concomitant]
     Active Substance: BUTYLSCOPOLAMINE BROMIDE
     Indication: GASTRITIS
     Dosage: UNK
     Route: 048
  45. PEGFILGRASTIM [Suspect]
     Active Substance: PEGFILGRASTIM
     Dosage: 3.6 MG, UNK
     Route: 058
     Dates: start: 20160610, end: 20160610
  46. ADRIACIN [Suspect]
     Active Substance: DOXORUBICIN HYDROCHLORIDE
     Indication: NON-HODGKIN^S LYMPHOMA
     Dosage: 50 MG/M2, UNK
     Route: 041
     Dates: start: 20160413, end: 20160413
  47. ONCOVIN [Suspect]
     Active Substance: VINCRISTINE SULFATE
     Dosage: 1.4 MG/M2, UNK
     Route: 041
     Dates: start: 20160608, end: 20160608
  48. LENOGRASTIM [Concomitant]
     Active Substance: LENOGRASTIM
     Indication: FEBRILE NEUTROPENIA
     Dosage: 100 MUG, UNK
     Route: 065
     Dates: start: 20160421, end: 20160424
  49. CALONAL [Concomitant]
     Active Substance: ACETAMINOPHEN
     Indication: PYREXIA
     Dosage: UNK
     Route: 048
  50. ZOLPIDEM TARTRATE. [Concomitant]
     Active Substance: ZOLPIDEM TARTRATE
     Indication: INSOMNIA
     Dosage: UNK
     Route: 048
  51. CALCITRIOL. [Concomitant]
     Active Substance: CALCITRIOL
     Indication: OSTEOPOROSIS
     Dosage: UNK
     Route: 048
  52. GOODMIN [Concomitant]
     Active Substance: BROTIZOLAM
     Indication: INSOMNIA
     Dosage: UNK
     Route: 048
  53. LEVOFLOXACIN HEMIHYDRATE [Concomitant]
     Active Substance: LEVOFLOXACIN
     Indication: ENTEROCOLITIS
     Dosage: UNK
     Route: 048
  54. MIYA-BM [Concomitant]
     Active Substance: CLOSTRIDIUM BUTYRICUM SPORES STRAIN M-55
     Indication: ENTEROCOLITIS
     Dosage: UNK
     Route: 048

REACTIONS (7)
  - Colony stimulating factor therapy [Unknown]
  - Neuropathy peripheral [Recovering/Resolving]
  - Pneumonia [Recovering/Resolving]
  - Febrile neutropenia [Recovering/Resolving]
  - Enterocolitis [Recovered/Resolved]
  - Febrile neutropenia [Recovering/Resolving]
  - Gastritis [Recovering/Resolving]

NARRATIVE: CASE EVENT DATE: 20160421
